FAERS Safety Report 6791288-0 (Version None)
Quarter: 2010Q2

REPORT INFORMATION
  Report Type: 
  Country: None (occurrence: None)
  Receive Date: 20100624
  Receipt Date: 20100616
  Transmission Date: 20101027
  Serious: Yes (Other)
  Sender: FDA-Public Use
  Company Number: CHPA2010US10101

PATIENT
  Age: 33 Year
  Sex: Male
  Weight: 104.31 kg

DRUGS (4)
  1. PRIVATE LABEL (NCH) [Suspect]
     Indication: SMOKING CESSATION THERAPY
     Dosage: 21 MG, QD
     Route: 062
     Dates: start: 20100616
  2. PRIVATE LABEL (NCH) [Suspect]
     Dosage: 7 MG, QD
     Route: 062
     Dates: start: 20080101, end: 20080101
  3. PRIVATE LABEL (NCH) [Suspect]
     Dosage: 14 MG, QD
     Route: 062
     Dates: start: 20080101, end: 20080101
  4. PRIVATE LABEL (NCH) [Suspect]
     Dosage: 21 MG, QD
     Route: 062
     Dates: start: 20080101, end: 20080101

REACTIONS (1)
  - INTERVERTEBRAL DISC PROTRUSION [None]
